FAERS Safety Report 9021440 (Version 1)
Quarter: 2013Q1

REPORT INFORMATION
  Report Type: Spontaneous
  Country: US (occurrence: US)
  Receive Date: 20130119
  Receipt Date: 20130119
  Transmission Date: 20140127
  Serious: No
  Sender: FDA-Public Use
  Company Number: US-009507513-1301USA008716

PATIENT
  Sex: Male

DRUGS (2)
  1. RIBAVIRIN [Suspect]
     Indication: HEPATITIS C
     Dosage: UNK
     Dates: start: 20030101, end: 20031201
  2. INTRONA [Suspect]
     Indication: HEPATITIS C
     Dosage: UNK, SHOT TAKEN DAILY
     Dates: start: 20030101, end: 20031201

REACTIONS (1)
  - Drug ineffective [Unknown]
